FAERS Safety Report 5243956-X (Version None)
Quarter: 2007Q1

REPORT INFORMATION
  Report Type: 
  Country: None (occurrence: None)
  Receive Date: 20070220
  Receipt Date: 20070220
  Transmission Date: 20070707
  Serious: No
  Sender: FDA-Public Use
  Company Number: None

PATIENT
  Age: 59 Year
  Sex: Male

DRUGS (2)
  1. VANCOMYCIN HYDROCHLORIDE [Suspect]
     Indication: BACTERAEMIA
     Dosage: IV
     Route: 042
  2. VANCOMYCIN HYDROCHLORIDE [Suspect]
     Indication: CELLULITIS
     Dosage: IV
     Route: 042

REACTIONS (2)
  - DEAFNESS UNILATERAL [None]
  - OTOTOXICITY [None]
